FAERS Safety Report 9802949 (Version 2)
Quarter: 2014Q1

REPORT INFORMATION
  Report Type: Spontaneous
  Country: FR (occurrence: FR)
  Receive Date: 20140108
  Receipt Date: 20140108
  Transmission Date: 20141002
  Serious: Yes (Death)
  Sender: FDA-Public Use
  Company Number: FR-TEVA-452025ISR

PATIENT
  Age: 73 Year
  Sex: Male

DRUGS (13)
  1. OXALIPLATINE TEVA 5 MG/ML [Suspect]
     Indication: T-CELL LYMPHOMA
     Dosage: 140 MILLIGRAM DAILY; 5 CURES
     Route: 041
     Dates: start: 20130819, end: 20131016
  2. SOLUMEDROL [Suspect]
     Indication: T-CELL LYMPHOMA
     Dosage: 100 MILLIGRAM DAILY; 1 COURSE
     Route: 042
     Dates: start: 20131030, end: 20131103
  3. GEMZAR [Suspect]
     Indication: T-CELL LYMPHOMA
     Dosage: 1400 MILLIGRAM DAILY; 5 CURES
     Route: 042
     Dates: start: 20130819, end: 20131016
  4. ENDOXAN [Suspect]
     Indication: T-CELL LYMPHOMA
     Dosage: 1 GRAM DAILY; ONE CURE
     Route: 042
     Dates: start: 20131030, end: 20131030
  5. ADRIBLASTINE [Suspect]
     Indication: T-CELL LYMPHOMA
     Dosage: 70 MILLIGRAM DAILY; ONE CURE
     Route: 042
     Dates: start: 20131030, end: 20131030
  6. VINCRISTINE HOSPIRA 2 MG/2 ML [Suspect]
     Indication: T-CELL LYMPHOMA
     Dosage: 2 MILLIGRAM DAILY; ONE CURE
     Route: 042
     Dates: start: 20131030, end: 20131030
  7. KARDEGIC [Concomitant]
     Dosage: 160 MILLIGRAM DAILY;
     Dates: start: 201305
  8. LASILIX [Concomitant]
     Dosage: 20 MILLIGRAM DAILY;
     Dates: start: 201305
  9. EUPANTOL [Concomitant]
     Dosage: 20 MILLIGRAM DAILY;
     Dates: start: 201305
  10. TRIATEC [Concomitant]
     Dosage: 1.25 MILLIGRAM DAILY;
     Dates: start: 201305
  11. PROCORALAN [Concomitant]
     Dosage: 5 MILLIGRAM DAILY;
     Dates: start: 201305
  12. SOLUPRED [Concomitant]
     Dosage: 60 MILLIGRAM DAILY;
     Dates: start: 201305
  13. STILNOX [Concomitant]
     Dosage: 1 TABLET DAILY;
     Dates: start: 201305

REACTIONS (1)
  - Interstitial lung disease [Fatal]
